FAERS Safety Report 18104152 (Version 1)
Quarter: 2020Q3

REPORT INFORMATION
  Report Type: Spontaneous
  Country: US (occurrence: US)
  Receive Date: 20200803
  Receipt Date: 20200803
  Transmission Date: 20201103
  Serious: Yes (Hospitalization)
  Sender: FDA-Public Use
  Company Number: None

PATIENT
  Age: 88 Year
  Sex: Male
  Weight: 79.2 kg

DRUGS (16)
  1. PREDNISONE. [Concomitant]
     Active Substance: PREDNISONE
     Dates: start: 20200610, end: 20200617
  2. DOXYCYCLINE. [Concomitant]
     Active Substance: DOXYCYCLINE
     Dates: start: 20200616, end: 20200622
  3. ALBUTEROL. [Concomitant]
     Active Substance: ALBUTEROL
     Dates: start: 20200610, end: 20200622
  4. AZITHROMYCIN ANHYDROUS. [Concomitant]
     Active Substance: AZITHROMYCIN ANHYDROUS
     Dates: start: 20200609, end: 20200613
  5. ASCORBIC ACID IV [Concomitant]
     Dates: start: 20200609, end: 20200614
  6. ENOXAPARIN [Concomitant]
     Active Substance: ENOXAPARIN
     Dates: start: 20200611, end: 20200622
  7. ZINC SULFATE. [Concomitant]
     Active Substance: ZINC SULFATE
     Dates: start: 20200610, end: 20200622
  8. REMDESIVIR. [Suspect]
     Active Substance: REMDESIVIR
     Indication: COVID-19
     Route: 041
     Dates: start: 20200611, end: 20200615
  9. DILTIAZEM. [Concomitant]
     Active Substance: DILTIAZEM
     Dates: start: 20200611, end: 20200622
  10. MONTELUKAST [Concomitant]
     Active Substance: MONTELUKAST SODIUM
     Dates: start: 20200610, end: 20200614
  11. CEFTRIAXONE. [Concomitant]
     Active Substance: CEFTRIAXONE
     Dates: start: 20200609, end: 20200610
  12. ACETAMINOPHEN PRN [Concomitant]
     Dates: start: 20200612, end: 20200619
  13. DEXAMETHASONE. [Concomitant]
     Active Substance: DEXAMETHASONE
     Dates: start: 20200618, end: 20200622
  14. BELLADONNA/OPIUM SUPPOSITORY [Concomitant]
     Dates: start: 20200606, end: 20200612
  15. PIPERACILLIN/TAZOBACTAM [Concomitant]
     Active Substance: PIPERACILLIN SODIUM\TAZOBACTAM SODIUM
     Dates: start: 20200611, end: 20200620
  16. THIAMINE IV [Concomitant]
     Dates: start: 20200610, end: 20200614

REACTIONS (4)
  - Chest pain [None]
  - Abdominal pain upper [None]
  - Hepatomegaly [None]
  - Liver function test increased [None]

NARRATIVE: CASE EVENT DATE: 20200725
